FAERS Safety Report 5058002-0 (Version None)
Quarter: 2006Q3

REPORT INFORMATION
  Report Type: 
  Country: None (occurrence: None)
  Receive Date: 20060721
  Receipt Date: 20060509
  Transmission Date: 20061208
  Serious: Yes (Other)
  Sender: FDA-Public Use
  Company Number: US-GLAXOSMITHKLINE-A0604870A

PATIENT
  Age: 66 Year
  Sex: Female

DRUGS (3)
  1. AVANDIA [Suspect]
     Dosage: 8MG PER DAY
     Route: 048
  2. GLIMEPIRIDE [Concomitant]
  3. METFORMIN [Concomitant]

REACTIONS (1)
  - MACULAR OEDEMA [None]
